FAERS Safety Report 13901623 (Version 1)
Quarter: 2017Q3

REPORT INFORMATION
  Report Type: Report from Study
  Country: None (occurrence: GB)
  Receive Date: 20170824
  Receipt Date: 20170824
  Transmission Date: 20171127
  Serious: Yes (Hospitalization)
  Sender: FDA-Public Use
  Company Number: GB-ABBVIE-17K-167-2080399-00

PATIENT
  Age: 74 Year
  Sex: Male

DRUGS (1)
  1. HUMIRA [Suspect]
     Active Substance: ADALIMUMAB
     Indication: RHEUMATOID ARTHRITIS
     Route: 058
     Dates: start: 20050315, end: 20160629

REACTIONS (5)
  - Erythema [Unknown]
  - Pyrexia [Recovering/Resolving]
  - Joint swelling [Unknown]
  - Malaise [Unknown]
  - Chronic obstructive pulmonary disease [Recovering/Resolving]

NARRATIVE: CASE EVENT DATE: 20160629
